FAERS Safety Report 6842577-2 (Version None)
Quarter: 2010Q3

REPORT INFORMATION
  Report Type: 
  Country: None (occurrence: None)
  Receive Date: 20100714
  Receipt Date: 20070728
  Transmission Date: 20110219
  Serious: No
  Sender: FDA-Public Use
  Company Number: US-PFIZER INC-2007064361

PATIENT
  Sex: Female
  Weight: 50 kg

DRUGS (8)
  1. CHANTIX [Suspect]
     Indication: SMOKING CESSATION THERAPY
     Route: 048
     Dates: start: 20070714
  2. LYRICA [Concomitant]
  3. NEXIUM [Concomitant]
  4. DICYCLOMINE [Concomitant]
  5. LAMISIL [Concomitant]
  6. BUPROPION [Concomitant]
     Dates: end: 20070726
  7. ESTRATEST [Concomitant]
  8. TRAZODONE HYDROCHLORIDE [Concomitant]

REACTIONS (3)
  - ABDOMINAL DISTENSION [None]
  - ABDOMINAL PAIN UPPER [None]
  - FLATULENCE [None]
